FAERS Safety Report 6737466-8 (Version None)
Quarter: 2010Q2

REPORT INFORMATION
  Report Type: 
  Country: None (occurrence: None)
  Receive Date: 20100524
  Receipt Date: 20100514
  Transmission Date: 20101027
  Serious: Yes (Other)
  Sender: FDA-Public Use
  Company Number: US-BAYER-201022622NA

PATIENT
  Age: 39 Year
  Sex: Female

DRUGS (1)
  1. MIRENA [Suspect]
     Indication: CONTRACEPTION
     Dosage: FREQUENCY: INTRAUTERINE
     Route: 015
     Dates: start: 20100201, end: 20100412

REACTIONS (3)
  - DEVICE DISLOCATION [None]
  - PELVIC PAIN [None]
  - UTERINE PERFORATION [None]
